FAERS Safety Report 12967690 (Version 2)
Quarter: 2017Q1

REPORT INFORMATION
  Report Type: Spontaneous
  Country: FR (occurrence: FR)
  Receive Date: 20161123
  Receipt Date: 20170228
  Transmission Date: 20170428
  Serious: Yes (Death, Hospitalization, Other)
  Sender: FDA-Public Use
  Company Number: PHHY2016FR160384

PATIENT
  Age: 83 Year
  Sex: Female
  Weight: 42.2 kg

DRUGS (7)
  1. LANSOPRAZOLE. [Concomitant]
     Active Substance: LANSOPRAZOLE
     Indication: PRODUCT USED FOR UNKNOWN INDICATION
     Dosage: 1 DF, QD (1 DOSAGE FORM  DAILY)
     Route: 065
  2. LASILIX [Concomitant]
     Active Substance: FUROSEMIDE
     Indication: PRODUCT USED FOR UNKNOWN INDICATION
     Dosage: 5 DF, QD (3 DOSAGE FORMS IN THE MORNING AND TWO DOSAGE FORMS AT NOON)
     Route: 065
  3. ENTRESTO [Suspect]
     Active Substance: SACUBITRIL\VALSARTAN
     Indication: CARDIAC FAILURE
     Dosage: 200 MG, BID (IN THE MORNING AND IN THE EVENING)
     Route: 065
     Dates: start: 20160209
  4. ENTRESTO [Suspect]
     Active Substance: SACUBITRIL\VALSARTAN
     Indication: ISCHAEMIC CARDIOMYOPATHY
  5. DIFFU K [Concomitant]
     Active Substance: POTASSIUM CHLORIDE
     Indication: PRODUCT USED FOR UNKNOWN INDICATION
     Dosage: 2 DF, QD (2 DOSAGE FORMS IN THE MORNING)
     Route: 065
  6. BISOCE [Concomitant]
     Active Substance: BISOPROLOL
     Indication: PRODUCT USED FOR UNKNOWN INDICATION
     Dosage: 1 DF, QD (1 DOSAGE FORM  IN THE MORNING)
     Route: 065
  7. KARDEGIC [Concomitant]
     Active Substance: ASPIRIN LYSINE
     Indication: PRODUCT USED FOR UNKNOWN INDICATION
     Dosage: 75 MG, QD
     Route: 065

REACTIONS (30)
  - Ischaemic cardiomyopathy [Fatal]
  - Blood pressure increased [Unknown]
  - C-reactive protein increased [Unknown]
  - Gamma-glutamyltransferase increased [Unknown]
  - Ventricular arrhythmia [Fatal]
  - Left ventricular end-diastolic pressure increased [Unknown]
  - Aspartate aminotransferase increased [Unknown]
  - PCO2 decreased [Unknown]
  - Pulmonary hypertension [Unknown]
  - Blood lactate dehydrogenase increased [Unknown]
  - Inferior vena cava dilatation [Unknown]
  - Alanine aminotransferase increased [Unknown]
  - Blood urea increased [Unknown]
  - Chest discomfort [Fatal]
  - Sinus node dysfunction [Unknown]
  - Blood alkaline phosphatase increased [Unknown]
  - Electrocardiogram ST segment elevation [Fatal]
  - Abdominal pain [Fatal]
  - Aortic valve incompetence [Unknown]
  - Rales [Unknown]
  - Diastolic dysfunction [Unknown]
  - Hypokinesia [Fatal]
  - Acute pulmonary oedema [Fatal]
  - Dyspnoea [Fatal]
  - Akinesia [Fatal]
  - Amyotrophy [Unknown]
  - Mitral valve incompetence [Unknown]
  - Cardiac arrest [Unknown]
  - Cardiac output decreased [Unknown]
  - Left ventricular dilatation [Unknown]

NARRATIVE: CASE EVENT DATE: 20161009
